FAERS Safety Report 20691376 (Version 1)
Quarter: 2022Q2

REPORT INFORMATION
  Report Type: Spontaneous
  Country: US (occurrence: US)
  Receive Date: 20220408
  Receipt Date: 20220408
  Transmission Date: 20220721
  Serious: No
  Sender: FDA-Public Use
  Company Number: US-AMGEN-USASP2022059149

PATIENT

DRUGS (1)
  1. NEULASTA [Suspect]
     Active Substance: PEGFILGRASTIM
     Indication: Product used for unknown indication
     Dosage: UNK (3X NEULASTA INJECTIONS FOR FIVE DAYS STRAIGHT)
     Route: 065

REACTIONS (2)
  - Inappropriate schedule of product administration [Unknown]
  - Bone pain [Not Recovered/Not Resolved]
